FAERS Safety Report 12032586 (Version 1)
Quarter: 2016Q1

REPORT INFORMATION
  Report Type: Report from Study
  Country: US (occurrence: US)
  Receive Date: 20160207
  Receipt Date: 20160207
  Transmission Date: 20160526
  Serious: Yes (Hospitalization)
  Sender: FDA-Public Use
  Company Number: US-ABBVIE-15K-163-1513175-00

PATIENT
  Sex: Female

DRUGS (2)
  1. HUMIRA [Suspect]
     Active Substance: ADALIMUMAB
     Indication: RHEUMATOID ARTHRITIS
     Route: 058
     Dates: start: 2013, end: 2015
  2. HUMIRA [Suspect]
     Active Substance: ADALIMUMAB
     Indication: CROHN^S DISEASE

REACTIONS (14)
  - Drug ineffective [Not Recovered/Not Resolved]
  - Constipation [Unknown]
  - Bronchitis [Recovered/Resolved with Sequelae]
  - Oropharyngeal discomfort [Unknown]
  - Fatigue [Unknown]
  - Memory impairment [Unknown]
  - Arthralgia [Unknown]
  - Diarrhoea [Unknown]
  - Atrial fibrillation [Recovered/Resolved]
  - Injection site pain [Recovered/Resolved]
  - Dizziness [Unknown]
  - Hypertension [Unknown]
  - Blood pressure fluctuation [Unknown]
  - Abdominal discomfort [Unknown]
